FAERS Safety Report 8285005 (Version 4)
Quarter: 2015Q1

REPORT INFORMATION
  Report Type: Spontaneous
  Country: US (occurrence: US)
  Receive Date: 20111212
  Receipt Date: 20150213
  Transmission Date: 20150721
  Serious: Yes (Hospitalization, Other)
  Sender: FDA-Public Use
  Company Number: US-ASTRAZENECA-2011SE73359

PATIENT
  Age: 67 Year
  Sex: Female
  Weight: 65.8 kg

DRUGS (10)
  1. NEXIUM [Suspect]
     Active Substance: ESOMEPRAZOLE MAGNESIUM
     Indication: GASTROOESOPHAGEAL REFLUX DISEASE
     Route: 048
  2. VITAMIN D [Concomitant]
     Active Substance: CHOLECALCIFEROL
     Indication: VITAMIN D DEFICIENCY
     Dates: start: 2014
  3. NEXIUM [Suspect]
     Active Substance: ESOMEPRAZOLE MAGNESIUM
     Indication: SCAR
     Route: 048
  4. NEXIUM [Suspect]
     Active Substance: ESOMEPRAZOLE MAGNESIUM
     Indication: SCAR
     Route: 048
  5. NEXIUM [Suspect]
     Active Substance: ESOMEPRAZOLE MAGNESIUM
     Indication: GASTROOESOPHAGEAL REFLUX DISEASE
     Route: 048
  6. NEXIUM [Suspect]
     Active Substance: ESOMEPRAZOLE MAGNESIUM
     Indication: GASTROOESOPHAGEAL REFLUX DISEASE
     Route: 048
     Dates: start: 1998
  7. NEXIUM [Suspect]
     Active Substance: ESOMEPRAZOLE MAGNESIUM
     Route: 048
  8. APRAZOLAM [Concomitant]
     Indication: SLEEP DISORDER
     Dates: start: 201412
  9. NEXIUM [Suspect]
     Active Substance: ESOMEPRAZOLE MAGNESIUM
     Indication: SCAR
     Route: 048
     Dates: start: 1998
  10. VITAMIN D [Concomitant]
     Active Substance: CHOLECALCIFEROL
     Indication: ARTHRALGIA
     Dates: start: 2014

REACTIONS (16)
  - Dyspepsia [Unknown]
  - Constipation [Unknown]
  - Cystitis [Unknown]
  - Swelling [Unknown]
  - Drug ineffective [Unknown]
  - Hyperchlorhydria [Unknown]
  - Bladder prolapse [Recovered/Resolved]
  - Gastrooesophageal reflux disease [Unknown]
  - Feeding disorder [Unknown]
  - Vomiting [Unknown]
  - Off label use [Not Recovered/Not Resolved]
  - Drug dose omission [Unknown]
  - Pain [Unknown]
  - Abdominal discomfort [Unknown]
  - Intentional product misuse [Unknown]
  - Breast cancer [Unknown]

NARRATIVE: CASE EVENT DATE: 2014
